FAERS Safety Report 6585309-8 (Version None)
Quarter: 2010Q1

REPORT INFORMATION
  Report Type: 
  Country: None (occurrence: None)
  Receive Date: 20100216
  Receipt Date: 20100216
  Transmission Date: 20100710
  Serious: No
  Sender: FDA-Public Use
  Company Number: None

PATIENT
  Age: 63 Year
  Sex: Male

DRUGS (1)
  1. NITROFURANTOIN [Suspect]
     Dosage: 100 MG BID PO
     Route: 048
     Dates: start: 20091216, end: 20091218

REACTIONS (1)
  - RASH [None]
